FAERS Safety Report 9565123 (Version 1)
Quarter: 2013Q3

REPORT INFORMATION
  Report Type: Spontaneous
  Country: US (occurrence: US)
  Receive Date: 20130930
  Receipt Date: 20130930
  Transmission Date: 20140515
  Serious: Yes (Other)
  Sender: FDA-Public Use
  Company Number: US-TEVA-434993USA

PATIENT
  Age: 54 Year
  Sex: Female
  Weight: 63.56 kg

DRUGS (11)
  1. NUVIGIL [Suspect]
     Indication: SOMNOLENCE
     Dates: end: 201306
  2. RITALIN [Concomitant]
     Indication: SOMNOLENCE
  3. XANAX [Concomitant]
     Indication: ANXIETY
     Dosage: 1 MILLIGRAM DAILY;
  4. CYMBALTA [Concomitant]
     Indication: NECK PAIN
     Dosage: 90 MILLIGRAM DAILY;
  5. CYMBALTA [Concomitant]
     Indication: DEPRESSION
  6. ALEVE [Concomitant]
     Indication: JOINT SWELLING
     Dosage: 220 MILLIGRAM DAILY;
  7. ALEVE [Concomitant]
     Indication: ARTHRALGIA
  8. IRON [Concomitant]
     Indication: ANAEMIA
     Dosage: 325 MILLIGRAM DAILY;
  9. HYDROXYCHLOROQUINE [Concomitant]
     Indication: SYSTEMIC LUPUS ERYTHEMATOSUS
     Dosage: 1.5 MILLIGRAM DAILY;
  10. ORPHENADRINE [Concomitant]
     Indication: PAIN
     Dosage: 200 MILLIGRAM DAILY;
  11. LYRICA [Concomitant]
     Indication: FIBROMYALGIA
     Dosage: 300 MILLIGRAM DAILY;

REACTIONS (7)
  - Convulsion [Not Recovered/Not Resolved]
  - Central nervous system lesion [Not Recovered/Not Resolved]
  - Memory impairment [Not Recovered/Not Resolved]
  - General physical health deterioration [Not Recovered/Not Resolved]
  - Nervous system disorder [Not Recovered/Not Resolved]
  - Balance disorder [Not Recovered/Not Resolved]
  - Gait disturbance [Not Recovered/Not Resolved]
